FAERS Safety Report 8127251-7 (Version None)
Quarter: 2012Q1

REPORT INFORMATION
  Report Type: 
  Country: None (occurrence: None)
  Receive Date: 20120210
  Receipt Date: 20120206
  Transmission Date: 20120608
  Serious: Yes (Death, Other)
  Sender: FDA-Public Use
  Company Number: PHHY2012CA007200

PATIENT
  Sex: Male

DRUGS (13)
  1. LEVEMIR [Concomitant]
  2. EFFEXOR [Concomitant]
  3. LASIX [Concomitant]
  4. DIURETICS [Concomitant]
  5. FLOMAX [Concomitant]
  6. LYRICA [Concomitant]
  7. VICTOZA [Concomitant]
  8. ASPIRIN [Concomitant]
  9. ASPIRIN [Concomitant]
  10. INSULIN [Concomitant]
  11. LIPIDIL [Concomitant]
  12. ALISKIREN [Suspect]
     Dosage: 150 MG
     Dates: start: 20110701
  13. GLUCOPHAGE [Concomitant]

REACTIONS (2)
  - ARTERIOSCLEROSIS [None]
  - ARRHYTHMIA [None]
